FAERS Safety Report 14742179 (Version 1)
Quarter: 2018Q2

REPORT INFORMATION
  Report Type: Spontaneous
  Country: FR (occurrence: FR)
  Receive Date: 20180410
  Receipt Date: 20180410
  Transmission Date: 20180711
  Serious: Yes (Life-Threatening, Other)
  Sender: FDA-Public Use
  Company Number: FR-NOVOPROD-593924

PATIENT
  Age: 26 Year
  Sex: Male
  Weight: 52 kg

DRUGS (2)
  1. LANTUS [Suspect]
     Active Substance: INSULIN GLARGINE
     Indication: SUICIDE ATTEMPT
     Dosage: UNK
     Route: 058
     Dates: start: 20170728, end: 20170728
  2. NOVORAPID [Suspect]
     Active Substance: INSULIN ASPART
     Indication: SUICIDE ATTEMPT
     Dosage: UNK
     Route: 058
     Dates: start: 20170728, end: 20170728

REACTIONS (2)
  - Suicide attempt [Unknown]
  - Hypoglycaemic coma [Recovered/Resolved]

NARRATIVE: CASE EVENT DATE: 20170728
